FAERS Safety Report 6124231-8 (Version None)
Quarter: 2009Q1

REPORT INFORMATION
  Report Type: 
  Country: None (occurrence: None)
  Receive Date: 20090319
  Receipt Date: 20090311
  Transmission Date: 20090719
  Serious: Yes (Death, Hospitalization)
  Sender: FDA-Public Use
  Company Number: US-WATSON-2009-01438

PATIENT
  Sex: Male

DRUGS (2)
  1. ALLOPURINOL (WATSON LABORATORIES) [Suspect]
     Indication: LYMPHOMA
     Dosage: 100 MG DAILY TIMES 14 DAYS
     Route: 048
     Dates: start: 20080925, end: 20081009
  2. TREANDA [Suspect]
     Indication: CHRONIC LYMPHOCYTIC LEUKAEMIA
     Dosage: 200 MG, SINGLE DOSES ON EACH DAY
     Route: 042
     Dates: start: 20081006, end: 20081007

REACTIONS (16)
  - COLITIS [None]
  - DIARRHOEA [None]
  - HEPATIC ENZYME INCREASED [None]
  - HYPOALBUMINAEMIA [None]
  - HYPOTENSION [None]
  - MUCOSAL INFLAMMATION [None]
  - PSEUDOMONAS INFECTION [None]
  - PYREXIA [None]
  - RASH ERYTHEMATOUS [None]
  - RASH MACULO-PAPULAR [None]
  - RENAL FAILURE [None]
  - SEPSIS [None]
  - STEVENS-JOHNSON SYNDROME [None]
  - TACHYCARDIA [None]
  - TOXIC EPIDERMAL NECROLYSIS [None]
  - WEIGHT DECREASED [None]
